FAERS Safety Report 12590453 (Version 10)
Quarter: 2018Q2

REPORT INFORMATION
  Report Type: Report from Study
  Country: AU (occurrence: AU)
  Receive Date: 20160725
  Receipt Date: 20180608
  Transmission Date: 20180711
  Serious: Yes (Hospitalization)
  Sender: FDA-Public Use
  Company Number: AU-BIOGEN-2016BI00211730

PATIENT
  Age: 45 Year
  Sex: Female

DRUGS (3)
  1. CLARATYNE [Concomitant]
     Active Substance: LORATADINE
     Indication: PREMEDICATION
     Route: 065
  2. PANADOL [Concomitant]
     Active Substance: ACETAMINOPHEN
     Indication: PRODUCT USED FOR UNKNOWN INDICATION
     Route: 065
  3. TYSABRI [Suspect]
     Active Substance: NATALIZUMAB
     Indication: MULTIPLE SCLEROSIS
     Dosage: INFUSED OVER 1 HOUR
     Route: 042
     Dates: start: 20160118

REACTIONS (37)
  - Body temperature fluctuation [Unknown]
  - Muscular weakness [Unknown]
  - Tremor [Recovered/Resolved]
  - Palpitations [Recovered/Resolved]
  - Therapeutic response shortened [Unknown]
  - Hypersomnia [Unknown]
  - Hypoaesthesia oral [Recovered/Resolved]
  - Feeling hot [Unknown]
  - Burning sensation [Recovered/Resolved]
  - Hyperhidrosis [Recovered/Resolved]
  - Erythema [Recovered/Resolved]
  - Gait disturbance [Not Recovered/Not Resolved]
  - Insomnia [Recovered/Resolved]
  - Tremor [Not Recovered/Not Resolved]
  - Vomiting [Recovered/Resolved]
  - Malaise [Not Recovered/Not Resolved]
  - Uterine cyst [Unknown]
  - Incorrect drug administration rate [Recovered/Resolved]
  - Genital erosion [Not Recovered/Not Resolved]
  - Poor venous access [Unknown]
  - Palpitations [Not Recovered/Not Resolved]
  - Peripheral coldness [Not Recovered/Not Resolved]
  - Flushing [Unknown]
  - Menorrhagia [Not Recovered/Not Resolved]
  - Vision blurred [Unknown]
  - Stress [Not Recovered/Not Resolved]
  - Somnolence [Not Recovered/Not Resolved]
  - Multiple sclerosis [Recovered/Resolved]
  - Nausea [Unknown]
  - Musculoskeletal chest pain [Unknown]
  - Tooth disorder [Unknown]
  - Skin discolouration [Recovered/Resolved]
  - Heart rate increased [Recovered/Resolved]
  - Vertigo [Not Recovered/Not Resolved]
  - Visual field defect [Not Recovered/Not Resolved]
  - Nail infection [Recovered/Resolved]
  - Sinusitis [Not Recovered/Not Resolved]

NARRATIVE: CASE EVENT DATE: 201601
